FAERS Safety Report 14305796 (Version 1)
Quarter: 2017Q4

REPORT INFORMATION
  Report Type: Spontaneous
  Country: US (occurrence: US)
  Receive Date: 20171219
  Receipt Date: 20171219
  Transmission Date: 20180321
  Serious: No
  Sender: FDA-Public Use
  Company Number: US-SEPTODONT-201603737

PATIENT

DRUGS (1)
  1. MEPIVACAINE [Suspect]
     Active Substance: MEPIVACAINE\MEPIVACAINE HYDROCHLORIDE
     Indication: LOCAL ANAESTHESIA
     Dosage: THREE TO FOUR CARPULES ADMINSITERED
     Route: 004
     Dates: start: 20161027, end: 20161027

REACTIONS (1)
  - Drug ineffective [Unknown]

NARRATIVE: CASE EVENT DATE: 20161027
